FAERS Safety Report 6119867-4 (Version None)
Quarter: 2009Q1

REPORT INFORMATION
  Report Type: 
  Country: None (occurrence: None)
  Receive Date: 20090316
  Receipt Date: 20090303
  Transmission Date: 20090719
  Serious: Yes (Hospitalization)
  Sender: FDA-Public Use
  Company Number: JP-ROCHE-614654

PATIENT
  Sex: Female
  Weight: 61 kg

DRUGS (3)
  1. TAMIFLU [Suspect]
     Indication: INFLUENZA IMMUNISATION
     Route: 048
     Dates: start: 20090203, end: 20090207
  2. ONON [Suspect]
     Indication: ASTHMA
     Dosage: ORAL FORMULATION (NOT OTHERWISE SPECIFIED)
     Route: 048
  3. ALLELOCK [Suspect]
     Indication: ASTHMA
     Route: 048

REACTIONS (1)
  - CONVULSION [None]
